FAERS Safety Report 10379220 (Version 1)
Quarter: 2014Q3

REPORT INFORMATION
  Report Type: Spontaneous
  Country: US (occurrence: None)
  Receive Date: 20140811
  Receipt Date: 20140811
  Transmission Date: 20150326
  Serious: Yes (Other)
  Sender: FDA-Public Use
  Company Number: None

PATIENT
  Age: 36 Year
  Sex: Female
  Weight: 81.65 kg

DRUGS (3)
  1. ESZOPICLONE. [Suspect]
     Active Substance: ESZOPICLONE
     Indication: POST-TRAUMATIC STRESS DISORDER
     Route: 048
     Dates: start: 20140731, end: 20140806
  2. ESZOPICLONE. [Suspect]
     Active Substance: ESZOPICLONE
     Indication: SLEEP TERROR
     Route: 048
     Dates: start: 20140731, end: 20140806
  3. ESZOPICLONE. [Suspect]
     Active Substance: ESZOPICLONE
     Indication: INSOMNIA
     Route: 048
     Dates: start: 20140731, end: 20140806

REACTIONS (14)
  - Product size issue [None]
  - Diarrhoea [None]
  - Hyperhidrosis [None]
  - Dyspepsia [None]
  - Sleep disorder due to general medical condition, insomnia type [None]
  - Body temperature increased [None]
  - Dizziness [None]
  - Product substitution issue [None]
  - Nausea [None]
  - Dysphagia [None]
  - Product taste abnormal [None]
  - Retching [None]
  - Vomiting [None]
  - Dysgeusia [None]

NARRATIVE: CASE EVENT DATE: 20140726
